FAERS Safety Report 11878483 (Version 1)
Quarter: 2015Q4

REPORT INFORMATION
  Report Type: Spontaneous
  Country: US (occurrence: None)
  Receive Date: 20151229
  Receipt Date: 20151229
  Transmission Date: 20160305
  Serious: Yes (Hospitalization)
  Sender: FDA-Public Use
  Company Number: None

PATIENT
  Age: 67 Year
  Sex: Male
  Weight: 84.5 kg

DRUGS (2)
  1. MOXIFLOXACIN. [Suspect]
     Active Substance: MOXIFLOXACIN
     Indication: PNEUMONIA
     Route: 048
     Dates: start: 20150703, end: 20150703
  2. BENZONATATE. [Suspect]
     Active Substance: BENZONATATE
     Indication: COUGH
     Route: 048
     Dates: start: 20150703, end: 20150703

REACTIONS (1)
  - Angioedema [None]

NARRATIVE: CASE EVENT DATE: 20150704
